FAERS Safety Report 7520314-6 (Version None)
Quarter: 2011Q2

REPORT INFORMATION
  Report Type: 
  Country: None (occurrence: None)
  Receive Date: 20110602
  Receipt Date: 20110524
  Transmission Date: 20111010
  Serious: Yes (Disabling)
  Sender: FDA-Public Use
  Company Number: CN-BAYER-2011-041740

PATIENT
  Age: 57 Year
  Sex: Female

DRUGS (1)
  1. ULTRAVIST 370 [Suspect]
     Indication: ANGIOGRAM
     Dosage: 80 ML, ONCE
     Route: 013

REACTIONS (7)
  - DISORIENTATION [None]
  - BLINDNESS [None]
  - HEADACHE [None]
  - MEMORY IMPAIRMENT [None]
  - BLINDNESS CORTICAL [None]
  - VOMITING [None]
  - NAUSEA [None]
